FAERS Safety Report 10142793 (Version 1)
Quarter: 2014Q2

REPORT INFORMATION
  Report Type: Report from Study
  Country: IT (occurrence: None)
  Receive Date: 20140428
  Receipt Date: 20140428
  Transmission Date: 20141212
  Serious: Yes (Other)
  Sender: FDA-Public Use
  Company Number: 2014-08750

PATIENT
  Age: 53 Year
  Sex: Female

DRUGS (2)
  1. TRELSTAR [Suspect]
     Indication: BREAST CANCER
     Dosage: 1 DF, IN 28 D, INTRAMUSCULAR
     Route: 030
     Dates: start: 20080321, end: 20130316
  2. EXEMESTANE (ACTAVIS) (EXEMESTANE 25MG) TABLET, 25MG [Suspect]
     Indication: BREAST CANCER
     Route: 048
     Dates: start: 20080321, end: 20130315

REACTIONS (1)
  - Uterine polyp [None]
